FAERS Safety Report 18233664 (Version 2)
Quarter: 2025Q4

REPORT INFORMATION
  Report Type: Spontaneous
  Country: US (occurrence: US)
  Receive Date: 20200904
  Receipt Date: 20251120
  Transmission Date: 20260117
  Serious: Yes (Hospitalization, Other)
  Sender: NOVO NORDISK
  Company Number: US-NOVOPROD-750406

PATIENT
  Sex: Female

DRUGS (3)
  1. LEVEMIR [Suspect]
     Active Substance: INSULIN DETEMIR
     Indication: Diabetes mellitus
     Dosage: UNK, BID
     Route: 058
  2. NOVOLOG [Suspect]
     Active Substance: INSULIN ASPART
     Indication: Diabetes mellitus
     Dosage: 3X A DAY SLIDING SCALE ((BASED ON SUGAR READINGS))
     Route: 058
  3. HUMALOG [Concomitant]
     Active Substance: INSULIN LISPRO
     Indication: Diabetes mellitus
     Dosage: UNK

REACTIONS (12)
  - Lower respiratory tract infection viral [Unknown]
  - Lung disorder [Unknown]
  - Mammoplasty [Unknown]
  - Knee operation [Unknown]
  - Atrial fibrillation [Recovered/Resolved]
  - Weight increased [Unknown]
  - Cough [Unknown]
  - Insomnia [Unknown]
  - Hyporeflexia [Unknown]
  - Visual impairment [Unknown]
  - Lymphoedema [Unknown]
  - Injection site discolouration [Unknown]
